FAERS Safety Report 6266620-7 (Version None)
Quarter: 2009Q3

REPORT INFORMATION
  Report Type: 
  Country: None (occurrence: None)
  Receive Date: 20090710
  Receipt Date: 20090701
  Transmission Date: 20100115
  Serious: Yes (Hospitalization)
  Sender: FDA-Public Use
  Company Number: 2009AL004356

PATIENT
  Age: 75 Year
  Sex: Female

DRUGS (15)
  1. DIGOXIN [Suspect]
     Dosage: 0.1258MG, DAILY, PO
     Route: 048
  2. ALLOPURINOL [Concomitant]
  3. ASPIRIN [Concomitant]
  4. PLAVIX [Concomitant]
  5. TOPROL-XL [Concomitant]
  6. HYDRALAZINE HCL [Concomitant]
  7. DIOVAN [Concomitant]
  8. TORSEMIDE [Concomitant]
  9. LOVASTATIN [Concomitant]
  10. IMDUR [Concomitant]
  11. ZETIA [Concomitant]
  12. MECLIZINE [Concomitant]
  13. FOLGARD [Concomitant]
  14. ATROVENT [Concomitant]
  15. FERROUS SULFATE TAB [Concomitant]

REACTIONS (8)
  - CARDIAC FAILURE CONGESTIVE [None]
  - CARDIOACTIVE DRUG LEVEL ABOVE THERAPEUTIC [None]
  - CONDITION AGGRAVATED [None]
  - DIALYSIS [None]
  - FLUID RETENTION [None]
  - NAUSEA [None]
  - RENAL FAILURE CHRONIC [None]
  - VOMITING [None]
